FAERS Safety Report 9387277 (Version 1)
Quarter: 2013Q3

REPORT INFORMATION
  Report Type: Spontaneous
  Country: DE (occurrence: None)
  Receive Date: 20130702
  Receipt Date: 20130702
  Transmission Date: 20140515
  Serious: Yes (Life-Threatening, Hospitalization)
  Sender: FDA-Public Use
  Company Number: FK201302304

PATIENT
  Age: 60 Year
  Sex: Male

DRUGS (1)
  1. GEMCITABINE [Suspect]
     Indication: COLON CANCER
     Dosage: (NOT OTHERWISE SPECIFIED)
     Route: 042
     Dates: start: 20121016, end: 20130226

REACTIONS (1)
  - Cardiomyopathy [None]
